FAERS Safety Report 4508794-1 (Version None)
Quarter: 2004Q4

REPORT INFORMATION
  Report Type: 
  Country: None (occurrence: None)
  Receive Date: 20041123
  Receipt Date: 20040810
  Transmission Date: 20050328
  Serious: No
  Sender: FDA-Public Use
  Company Number: US-GLAXOSMITHKLINE-A0521664A

PATIENT
  Age: 67 Year
  Sex: Female

DRUGS (5)
  1. WELLBUTRIN SR [Suspect]
     Indication: DEPRESSION
     Dosage: 100MG PER DAY
     Route: 048
  2. WELLBUTRIN XL [Suspect]
     Indication: DEPRESSION
     Dosage: 150MG PER DAY
     Route: 048
     Dates: start: 20040712
  3. PREMPRO [Concomitant]
  4. XANAX [Concomitant]
  5. ROBAXIN [Concomitant]

REACTIONS (3)
  - CRYING [None]
  - DEPRESSION [None]
  - DYSPEPSIA [None]
